FAERS Safety Report 10462445 (Version 2)
Quarter: 2014Q3

REPORT INFORMATION
  Report Type: Report from Study
  Country: US (occurrence: US)
  Receive Date: 20140918
  Receipt Date: 20140924
  Transmission Date: 20150326
  Serious: Yes (Other)
  Sender: FDA-Public Use
  Company Number: US-BAYER-2014-136162

PATIENT
  Age: 50 Year
  Sex: Male

DRUGS (7)
  1. BETASERON [Suspect]
     Active Substance: INTERFERON BETA-1B
     Indication: MULTIPLE SCLEROSIS
     Dosage: 4 MIU, QOD
     Route: 058
  2. TYLENOL [Concomitant]
     Active Substance: ACETAMINOPHEN
     Indication: PREMEDICATION
  3. BETASERON [Suspect]
     Active Substance: INTERFERON BETA-1B
     Indication: MULTIPLE SCLEROSIS
     Dosage: UNK
     Dates: start: 20140905
  4. BETASERON [Suspect]
     Active Substance: INTERFERON BETA-1B
     Indication: MULTIPLE SCLEROSIS
     Dosage: 4 MIU, QOD
  5. BETASERON [Suspect]
     Active Substance: INTERFERON BETA-1B
     Indication: MULTIPLE SCLEROSIS
     Dosage: UNK
     Dates: start: 20140721, end: 20140826
  6. ADVIL [Suspect]
     Active Substance: IBUPROFEN
     Indication: PREMEDICATION
     Dosage: 3 BEFORE AND 3 AFTER INJECTIONS
  7. BETASERON [Suspect]
     Active Substance: INTERFERON BETA-1B
     Indication: MULTIPLE SCLEROSIS
     Dosage: 8 MIU, QOD
     Route: 058
     Dates: start: 201409

REACTIONS (40)
  - Repetitive speech [None]
  - Fall [Not Recovered/Not Resolved]
  - Arthralgia [Not Recovered/Not Resolved]
  - Band sensation [Not Recovered/Not Resolved]
  - Chills [Recovered/Resolved]
  - Headache [Not Recovered/Not Resolved]
  - Decreased appetite [Not Recovered/Not Resolved]
  - Unevaluable event [Not Recovered/Not Resolved]
  - Pyrexia [Recovered/Resolved]
  - Drug hypersensitivity [Not Recovered/Not Resolved]
  - Aphagia [Not Recovered/Not Resolved]
  - Asthenia [Not Recovered/Not Resolved]
  - Depression [None]
  - Facial bones fracture [Not Recovered/Not Resolved]
  - Memory impairment [Not Recovered/Not Resolved]
  - Muscular weakness [Not Recovered/Not Resolved]
  - Feeling abnormal [Not Recovered/Not Resolved]
  - Injection site pain [Not Recovered/Not Resolved]
  - Confusional state [Recovered/Resolved]
  - Dysarthria [Not Recovered/Not Resolved]
  - Balance disorder [Recovered/Resolved]
  - Arthralgia [Not Recovered/Not Resolved]
  - Joint stiffness [Not Recovered/Not Resolved]
  - Vomiting [Recovered/Resolved]
  - Liver disorder [None]
  - Night sweats [Not Recovered/Not Resolved]
  - Injection site rash [None]
  - Abnormal loss of weight [Not Recovered/Not Resolved]
  - Periorbital contusion [Not Recovered/Not Resolved]
  - Cardiac pacemaker insertion [None]
  - General physical health deterioration [Not Recovered/Not Resolved]
  - Abasia [Not Recovered/Not Resolved]
  - Contusion [Not Recovered/Not Resolved]
  - Local swelling [Not Recovered/Not Resolved]
  - Injection site bruising [Not Recovered/Not Resolved]
  - Ankle fracture [Not Recovered/Not Resolved]
  - Nausea [Recovered/Resolved]
  - Pyrexia [Not Recovered/Not Resolved]
  - Pain [None]
  - Urticaria [Not Recovered/Not Resolved]

NARRATIVE: CASE EVENT DATE: 2014
